FAERS Safety Report 9958979 (Version 1)
Quarter: 2014Q1

REPORT INFORMATION
  Report Type: Report from Study
  Country: US (occurrence: US)
  Receive Date: 20140305
  Receipt Date: 20140305
  Transmission Date: 20141002
  Serious: No
  Sender: FDA-Public Use
  Company Number: US-ABBVIE-13P-163-1104401-00

PATIENT
  Age: 54 Year
  Sex: Female

DRUGS (19)
  1. HUMIRA [Suspect]
     Indication: CROHN^S DISEASE
     Dates: start: 20130605
  2. 6MP [Concomitant]
     Indication: CROHN^S DISEASE
     Dosage: 2 A DAY
  3. PENTASA [Concomitant]
     Indication: CROHN^S DISEASE
     Dosage: 8 A DAY
  4. LOMOTIL [Concomitant]
     Indication: DIARRHOEA
     Dosage: 2.5-.25MG; 1 A DAY
  5. NEXIUM [Concomitant]
     Indication: GASTROOESOPHAGEAL REFLUX DISEASE
     Dosage: 2 A DAY
  6. CARAFATE [Concomitant]
     Indication: GASTROOESOPHAGEAL REFLUX DISEASE
  7. METFORMIN [Concomitant]
     Indication: DIABETES MELLITUS
     Dosage: AT BEDTIME
  8. AMARYL [Concomitant]
     Indication: DIABETES MELLITUS
     Dosage: BEFORE LUNCH AND SUPPER
  9. VERAPAMIL [Concomitant]
     Indication: BLOOD PRESSURE
     Dosage: 1 A DAY
  10. LISINOPRIL [Concomitant]
     Indication: BLOOD PRESSURE
     Dosage: 1 A DAY
  11. CRESTOR [Concomitant]
     Indication: BLOOD CHOLESTEROL
     Dosage: 1 A DAY
  12. ZETIA [Concomitant]
     Indication: BLOOD CHOLESTEROL
     Dosage: 1 A DAY
  13. ALLEGRA D [Concomitant]
     Indication: HYPERSENSITIVITY
     Dosage: 1 A DAY
  14. NASONEX [Concomitant]
     Indication: HYPERSENSITIVITY
     Dosage: 1 IN THE AM AND 1 IN THE PM
  15. CALCIUM [Concomitant]
     Indication: MINERAL SUPPLEMENTATION
     Dosage: 1 A DAY
  16. VITAMIN D [Concomitant]
     Indication: VITAMIN SUPPLEMENTATION
     Dosage: 1 A DAY
  17. IRON [Concomitant]
     Indication: MINERAL SUPPLEMENTATION
     Dosage: 2 A DAY
  18. MULTIVITAMIN [Concomitant]
     Indication: VITAMIN SUPPLEMENTATION
     Dosage: 1 A DAY
  19. PROBIONTIC [Concomitant]
     Indication: VITAMIN SUPPLEMENTATION
     Dosage: 1 A DAY

REACTIONS (2)
  - Dizziness [Not Recovered/Not Resolved]
  - Nausea [Not Recovered/Not Resolved]
